FAERS Safety Report 9652351 (Version 1)
Quarter: 2013Q4

REPORT INFORMATION
  Report Type: Spontaneous
  Country: US (occurrence: US)
  Receive Date: 20131029
  Receipt Date: 20131029
  Transmission Date: 20140711
  Serious: No
  Sender: FDA-Public Use
  Company Number: US-BIOGENIDEC-2013BI075908

PATIENT
  Age: 56 Year
  Sex: Female

DRUGS (11)
  1. TECFIDERA [Suspect]
     Indication: MULTIPLE SCLEROSIS
     Route: 048
     Dates: start: 20130717
  2. TECFIDERA [Suspect]
     Indication: MULTIPLE SCLEROSIS
     Route: 048
     Dates: start: 20130725
  3. ALEVE [Concomitant]
  4. AMPYRA [Concomitant]
  5. BIOTIN [Concomitant]
  6. CALCIUM [Concomitant]
  7. LEVOTHYROXINE [Concomitant]
  8. NEURONTIN [Concomitant]
  9. PREMARIN [Concomitant]
  10. VITAMIN B3 [Concomitant]
  11. ZOLOFT [Concomitant]

REACTIONS (4)
  - Flushing [Not Recovered/Not Resolved]
  - Pruritus [Not Recovered/Not Resolved]
  - Abdominal pain upper [Not Recovered/Not Resolved]
  - Diarrhoea [Not Recovered/Not Resolved]
